FAERS Safety Report 6054193-3 (Version None)
Quarter: 2009Q1

REPORT INFORMATION
  Report Type: 
  Country: None (occurrence: None)
  Receive Date: 20090127
  Receipt Date: 20090119
  Transmission Date: 20090719
  Serious: Yes (Hospitalization, Other)
  Sender: FDA-Public Use
  Company Number: US-ELI_LILLY_AND_COMPANY-US200901003242

PATIENT
  Sex: Female
  Weight: 136.5 kg

DRUGS (3)
  1. BYETTA [Suspect]
     Route: 058
  2. METFORMIN HCL [Concomitant]
  3. TRICOR [Concomitant]
     Indication: BLOOD CHOLESTEROL

REACTIONS (1)
  - PANCREATITIS [None]
